FAERS Safety Report 5726896-9 (Version None)
Quarter: 2008Q2

REPORT INFORMATION
  Report Type: 
  Country: None (occurrence: None)
  Receive Date: 20080502
  Receipt Date: 20080422
  Transmission Date: 20081010
  Serious: Yes (Hospitalization)
  Sender: FDA-Public Use
  Company Number: FR-PFIZER INC-2008036637

PATIENT
  Sex: Male

DRUGS (1)
  1. GENOTROPIN [Suspect]

REACTIONS (1)
  - ILEORECTAL FISTULA [None]
